FAERS Safety Report 10606617 (Version 1)
Quarter: 2014Q4

REPORT INFORMATION
  Report Type: Spontaneous
  Country: US (occurrence: None)
  Receive Date: 20141124
  Receipt Date: 20141124
  Transmission Date: 20150529
  Serious: Yes (Other)
  Sender: FDA-Public Use
  Company Number: None

PATIENT
  Age: 54 Year
  Sex: Female
  Weight: 71.22 kg

DRUGS (1)
  1. MIRVASO [Suspect]
     Active Substance: BRIMONIDINE TARTRATE
     Indication: ROSACEA
     Dosage: ONCE DAILY, APPLIED TO SURFACE, USUALLY THE SKIN
     Dates: start: 20141105, end: 20141111

REACTIONS (3)
  - Burning sensation [None]
  - Erythema [None]
  - Pain [None]

NARRATIVE: CASE EVENT DATE: 20141105
